FAERS Safety Report 8962857 (Version 1)
Quarter: 2012Q4

REPORT INFORMATION
  Report Type: 
  Country: BR (occurrence: BR)
  Receive Date: 20121213
  Receipt Date: 20121213
  Transmission Date: 20130627
  Serious: Yes (Death, Life-Threatening, Hospitalization, Other)
  Sender: FDA-Public Use
  Company Number: BR-ELI_LILLY_AND_COMPANY-BR201212002077

PATIENT
  Age: 59 Year
  Sex: Female
  Weight: 70 kg

DRUGS (3)
  1. GEMZAR [Suspect]
     Dosage: UNK, other
     Route: 042
     Dates: start: 20070629
  2. AVASTIN [Concomitant]
     Indication: BREAST CANCER METASTATIC
     Dosage: 700 mg, other
     Route: 042
     Dates: start: 20061117
  3. DOCETAXEL [Concomitant]
     Dosage: 140 mg, other
     Route: 042
     Dates: start: 20061117

REACTIONS (4)
  - Gastrointestinal haemorrhage [Fatal]
  - Urinary tract infection [Recovered/Resolved]
  - Septic shock [Unknown]
  - Deep vein thrombosis [Recovered/Resolved]
